FAERS Safety Report 14205486 (Version 3)
Quarter: 2018Q1

REPORT INFORMATION
  Report Type: Report from Study
  Country: None (occurrence: US)
  Receive Date: 20171120
  Receipt Date: 20180205
  Transmission Date: 20180508
  Serious: Yes (Hospitalization)
  Sender: FDA-Public Use
  Company Number: US-ABBVIE-11P-163-0702175-00

PATIENT
  Age: 55 Year
  Sex: Female

DRUGS (3)
  1. HUMIRA [Suspect]
     Active Substance: ADALIMUMAB
     Route: 058
     Dates: start: 201707
  2. HUMIRA [Suspect]
     Active Substance: ADALIMUMAB
     Indication: HIDRADENITIS
     Route: 058
     Dates: start: 201009
  3. OXYCODONE [Concomitant]
     Active Substance: OXYCODONE
     Indication: PAIN

REACTIONS (24)
  - Dry skin [Unknown]
  - Lymphoedema [Unknown]
  - Pneumonia [Recovered/Resolved]
  - Localised infection [Recovered/Resolved]
  - Sensitivity to weather change [Unknown]
  - Pain of skin [Not Recovered/Not Resolved]
  - Fall [Recovering/Resolving]
  - Pain [Unknown]
  - Mobility decreased [Unknown]
  - Contusion [Unknown]
  - Diarrhoea [Recovered/Resolved]
  - Hidradenitis [Recovering/Resolving]
  - Gait disturbance [Unknown]
  - Skin disorder [Recovering/Resolving]
  - Blister [Unknown]
  - Dry skin [Unknown]
  - Skin haemorrhage [Unknown]
  - Dry skin [Unknown]
  - Cellulitis [Unknown]
  - Lymphoedema [Recovered/Resolved]
  - Feeling abnormal [Unknown]
  - Joint lock [Recovered/Resolved]
  - Restlessness [Recovered/Resolved]
  - Dermatitis acneiform [Unknown]

NARRATIVE: CASE EVENT DATE: 2011
